FAERS Safety Report 4384911-1 (Version None)
Quarter: 2004Q2

REPORT INFORMATION
  Report Type: 
  Country: None (occurrence: None)
  Receive Date: 20040623
  Receipt Date: 20040609
  Transmission Date: 20050107
  Serious: Yes (Death)
  Sender: FDA-Public Use
  Company Number: A-US2004-06539

PATIENT
  Age: 78 Year
  Sex: Female

DRUGS (7)
  1. TRACLEER [Suspect]
     Indication: PULMONARY HYPERTENSION
     Dosage: 125 MG+ 62.5 MG, BID, ORAL
     Route: 048
     Dates: start: 20020123, end: 20020223
  2. TRACLEER [Suspect]
     Indication: PULMONARY HYPERTENSION
     Dosage: 125 MG+ 62.5 MG, BID, ORAL
     Route: 048
     Dates: start: 20020224, end: 20040602
  3. DIGOXIN [Concomitant]
  4. CARDIZEM [Concomitant]
  5. LASIX [Concomitant]
  6. POTASSIUM (POTASSIUM) [Concomitant]
  7. PREVACID [Concomitant]

REACTIONS (3)
  - CONNECTIVE TISSUE DISORDER [None]
  - DISEASE PROGRESSION [None]
  - RESPIRATORY ARREST [None]
